FAERS Safety Report 15987297 (Version 1)
Quarter: 2019Q1

REPORT INFORMATION
  Report Type: Spontaneous
  Country: US (occurrence: US)
  Receive Date: 20190220
  Receipt Date: 20190220
  Transmission Date: 20190418
  Serious: No
  Sender: FDA-Public Use
  Company Number: US-RIGEL PHARMACEUTICALS, INC.-2018FOS000178

PATIENT

DRUGS (1)
  1. TAVALISSE [Suspect]
     Active Substance: FOSTAMATINIB
     Indication: IMMUNE THROMBOCYTOPENIC PURPURA
     Dosage: 100 MG, QD
     Route: 048

REACTIONS (6)
  - General physical health deterioration [Unknown]
  - Off label use [Unknown]
  - Memory impairment [Unknown]
  - Condition aggravated [Unknown]
  - Hospice care [Unknown]
  - Drug ineffective [Unknown]
